FAERS Safety Report 17215485 (Version 2)
Quarter: 2020Q4

REPORT INFORMATION
  Report Type: Report from Study
  Country: US (occurrence: US)
  Receive Date: 20191230
  Receipt Date: 20201229
  Transmission Date: 20210113
  Serious: Yes (Other)
  Sender: FDA-Public Use
  Company Number: US-CLOVIS ONCOLOGY-CLO-2019-002598

PATIENT
  Age: 58 Year
  Sex: Female

DRUGS (3)
  1. RUBRACA [Suspect]
     Active Substance: RUCAPARIB CAMSYLATE
     Dosage: 500 MG, BID
     Route: 048
     Dates: start: 20200226
  2. RUBRACA [Suspect]
     Active Substance: RUCAPARIB CAMSYLATE
     Dosage: 500 MG, BID
     Route: 048
     Dates: start: 201912, end: 2020
  3. RUBRACA [Suspect]
     Active Substance: RUCAPARIB CAMSYLATE
     Indication: OVARIAN CANCER
     Dosage: 600 MG, BID
     Route: 048
     Dates: start: 20191217, end: 20200109

REACTIONS (13)
  - Dyspnoea [Unknown]
  - Nausea [Not Recovered/Not Resolved]
  - Asthenia [Unknown]
  - Pruritus [Unknown]
  - Thrombocytopenia [Not Recovered/Not Resolved]
  - Blood iron decreased [Unknown]
  - Sneezing [Unknown]
  - Blood count abnormal [Unknown]
  - Vitamin B12 decreased [Unknown]
  - Increased tendency to bruise [Unknown]
  - Fatigue [Unknown]
  - Ear pain [Unknown]
  - Malaise [Unknown]

NARRATIVE: CASE EVENT DATE: 201912
